FAERS Safety Report 4457503-3 (Version None)
Quarter: 2004Q3

REPORT INFORMATION
  Report Type: 
  Country: None (occurrence: None)
  Receive Date: 20040922
  Receipt Date: 20040903
  Transmission Date: 20050211
  Serious: Yes (Hospitalization)
  Sender: FDA-Public Use
  Company Number: USA040977340

PATIENT
  Age: 82 Year
  Sex: Female
  Weight: 53 kg

DRUGS (6)
  1. FORTEO [Suspect]
     Indication: OSTEOPOROSIS
     Dosage: 20  UG/1 DAY
     Dates: start: 20040101
  2. CALCIUM AND VITAMIN D [Concomitant]
  3. AVAPRO [Concomitant]
  4. MOBIC [Concomitant]
  5. PLAVIX [Concomitant]
  6. PRAVACHOL [Concomitant]

REACTIONS (9)
  - ANAEMIA [None]
  - ASTHENIA [None]
  - CONFUSIONAL STATE [None]
  - DISORIENTATION [None]
  - HEARING IMPAIRED [None]
  - PHARMACEUTICAL PRODUCT COMPLAINT [None]
  - VERTIGO [None]
  - VISUAL DISTURBANCE [None]
  - WEIGHT DECREASED [None]
